FAERS Safety Report 17994481 (Version 1)
Quarter: 2020Q3

REPORT INFORMATION
  Report Type: Spontaneous
  Country: CA (occurrence: CA)
  Receive Date: 20200708
  Receipt Date: 20200708
  Transmission Date: 20201103
  Serious: Yes (Other)
  Sender: FDA-Public Use
  Company Number: CA-ACCORD-189167

PATIENT
  Age: 49 Year
  Sex: Male

DRUGS (4)
  1. PENTASA [Concomitant]
     Active Substance: MESALAMINE
     Dosage: 1 EVERY 1 DAYS
  2. MESALAZINE [Concomitant]
     Active Substance: MESALAMINE
     Dosage: 1 EVERY 1 DAYS
  3. MEZAVANT [Concomitant]
     Active Substance: MESALAMINE
     Dosage: EVERY 1 DAYS, DOSAGE FORM: TABLET (DELAYED AND EXTENDED RELEASE)
  4. METHOTREXATE. [Suspect]
     Active Substance: METHOTREXATE
     Indication: PRODUCT USED FOR UNKNOWN INDICATION
     Route: 058

REACTIONS (2)
  - Product use issue [Unknown]
  - Colitis ulcerative [Unknown]
